FAERS Safety Report 17350313 (Version 1)
Quarter: 2020Q1

REPORT INFORMATION
  Report Type: Report from Study
  Country: None (occurrence: HU)
  Receive Date: 20200130
  Receipt Date: 20200130
  Transmission Date: 20200409
  Serious: Yes (Death)
  Sender: FDA-Public Use
  Company Number: HU-ABBVIE-20K-076-3255960-00

PATIENT
  Sex: Male

DRUGS (1)
  1. SYNAGIS [Suspect]
     Active Substance: PALIVIZUMAB
     Indication: ANTIVIRAL PROPHYLAXIS
     Dosage: 50MG/0.5ML; SYNAGIS WAS GIVEN BASED ON BODY WEIGHT
     Route: 030
     Dates: start: 20191126, end: 20191227

REACTIONS (1)
  - Heart disease congenital [Fatal]
